FAERS Safety Report 6918218-2 (Version None)
Quarter: 2010Q3

REPORT INFORMATION
  Report Type: 
  Country: None (occurrence: None)
  Receive Date: 20100806
  Receipt Date: 20100802
  Transmission Date: 20110219
  Serious: Yes (Hospitalization)
  Sender: FDA-Public Use
  Company Number: WAES 0910USA03366

PATIENT
  Age: 50 Year
  Sex: Male

DRUGS (4)
  1. PRINIVIL [Suspect]
     Indication: HYPERTENSION
     Dosage: PO
     Route: 048
     Dates: start: 20090529, end: 20090915
  2. DAPAGLIFOZIN UNK [Suspect]
     Indication: TYPE 2 DIABETES MELLITUS
     Dosage: PO
     Route: 048
     Dates: start: 20080416
  3. PLACEBO (UNSPECIFIED) UNK [Suspect]
     Indication: TYPE 2 DIABETES MELLITUS
     Dosage: PO
     Route: 048
     Dates: start: 20080416
  4. ALEVE (CAPLET) [Concomitant]

REACTIONS (8)
  - ANGIOEDEMA [None]
  - ANTIBIOTIC RESISTANT STAPHYLOCOCCUS TEST POSITIVE [None]
  - BLOOD PRESSURE INCREASED [None]
  - INFECTED CYST [None]
  - PILONIDAL CYST [None]
  - PROCTALGIA [None]
  - PYREXIA [None]
  - TYPE 2 DIABETES MELLITUS [None]
